FAERS Safety Report 10090367 (Version 1)
Quarter: 2014Q2

REPORT INFORMATION
  Report Type: Spontaneous
  Country: US (occurrence: US)
  Receive Date: 20140421
  Receipt Date: 20140421
  Transmission Date: 20141212
  Serious: No
  Sender: FDA-Public Use
  Company Number: US-PFIZER INC-2014110253

PATIENT
  Age: 53 Year
  Sex: Female
  Weight: 90.7 kg

DRUGS (12)
  1. XELJANZ [Suspect]
     Indication: RHEUMATOID ARTHRITIS
     Dosage: 5 MG, 2X/DAY
     Route: 048
     Dates: start: 20140102, end: 20140407
  2. PILOCARPINE [Concomitant]
     Dosage: UNK
  3. CYCLOBENZAPRINE [Concomitant]
     Dosage: UNK
  4. AMBIEN [Concomitant]
     Dosage: UNK
  5. NORTRIPTYLINE [Concomitant]
     Dosage: UNK
  6. METOPROLOL [Concomitant]
     Dosage: UNK
  7. PREDNISONE [Concomitant]
     Dosage: UNK
  8. NAPROXEN [Concomitant]
     Dosage: UNK
  9. NEXIUM [Concomitant]
     Dosage: UNK
  10. CYMBALTA [Concomitant]
     Dosage: UNK
  11. PERCOCET [Concomitant]
     Dosage: UNK
  12. OXYCONTIN [Concomitant]
     Dosage: UNK

REACTIONS (1)
  - Tooth infection [Unknown]
